FAERS Safety Report 6558185 (Version 2)
Quarter: 2019Q1

REPORT INFORMATION
  Report Type: Spontaneous
  Country: GB (occurrence: GB)
  Receive Date: 20080221
  Receipt Date: 20190128
  Transmission Date: 20190418
  Serious: Yes (Hospitalization, Other)
  Sender: FDA-Public Use
  Company Number: GB-TEVA-167685ISR

PATIENT
  Age: 63 Year
  Sex: Female
  Weight: 60 kg

DRUGS (4)
  1. MAXIDEX [Suspect]
     Active Substance: DEXAMETHASONE
     Route: 047
     Dates: start: 200710
  2. ATENOLOL. [Suspect]
     Active Substance: ATENOLOL
     Dosage: 50 MILLIGRAM DAILY;
     Route: 048
  3. AZATHIOPRINE. [Suspect]
     Active Substance: AZATHIOPRINE
     Dosage: 150 MILLIGRAM DAILY;
     Route: 048
     Dates: start: 20071217, end: 20080106
  4. SIROLIMUS. [Suspect]
     Active Substance: SIROLIMUS
     Dosage: 3.5 MILLIGRAM DAILY;
     Route: 048

REACTIONS (4)
  - Diarrhoea [Recovered/Resolved]
  - Rhabdomyolysis [Recovered/Resolved]
  - Acute kidney injury [Recovering/Resolving]
  - Vomiting [Recovered/Resolved]

NARRATIVE: CASE EVENT DATE: 20071231
